FAERS Safety Report 5549321-X (Version None)
Quarter: 2007Q4

REPORT INFORMATION
  Report Type: 
  Country: None (occurrence: None)
  Receive Date: 20071212
  Receipt Date: 20071204
  Transmission Date: 20080405
  Serious: Yes (Other)
  Sender: FDA-Public Use
  Company Number: AT-BAYER-AT-2007-043521

PATIENT
  Age: 51 Year
  Sex: Female
  Weight: 61 kg

DRUGS (2)
  1. MIRENA [Suspect]
     Indication: CONTRACEPTION
     Route: 015
     Dates: start: 20020101, end: 20070301
  2. MIRENA [Suspect]
     Route: 015
     Dates: start: 20070301, end: 20070601

REACTIONS (2)
  - BREAST CANCER [None]
  - MASS [None]
